FAERS Safety Report 7960873-2 (Version None)
Quarter: 2011Q4

REPORT INFORMATION
  Report Type: 
  Country: None (occurrence: None)
  Receive Date: 20111121
  Receipt Date: 20110810
  Transmission Date: 20120403
  Serious: Yes (Hospitalization)
  Sender: FDA-Public Use
  Company Number: 2011-00898

PATIENT
  Age: 61 Year
  Sex: Male
  Weight: 81.6475 kg

DRUGS (2)
  1. SULFAMETHOXAZOLE AND TRIMETHOPRIM [Suspect]
     Indication: PRODUCT USED FOR UNKNOWN INDICATION
     Dosage: UNKNOWN (UNKNOWN, 2 IN 1 D), PER ORAL
     Route: 048
     Dates: start: 20110803, end: 20110808
  2. LISINOPRIL AND HYDROCHLOROTHIAZIDE [Suspect]
     Indication: HYPERTENSION
     Dosage: 20MG/12.5MG (DAILY), PER ORAL
     Route: 048
     Dates: start: 20080101, end: 20110808

REACTIONS (1)
  - HYPERSENSITIVITY [None]
